FAERS Safety Report 9700779 (Version 1)
Quarter: 2013Q4

REPORT INFORMATION
  Report Type: Spontaneous
  Country: PT (occurrence: None)
  Receive Date: 20131119
  Receipt Date: 20131119
  Transmission Date: 20140711
  Serious: Yes (Other)
  Sender: FDA-Public Use
  Company Number: AUR-APL-2013-09386

PATIENT
  Age: 39 Year
  Sex: Male

DRUGS (2)
  1. RIBAVIRIN(RIBAVIRIN) [Suspect]
     Indication: CHRONIC HEPATITIS C
  2. PEGINTERFERON [Suspect]

REACTIONS (2)
  - Inflammatory bowel disease [None]
  - Colitis ulcerative [None]
